FAERS Safety Report 5802126-4 (Version None)
Quarter: 2008Q3

REPORT INFORMATION
  Report Type: 
  Country: None (occurrence: None)
  Receive Date: 20080707
  Receipt Date: 20080626
  Transmission Date: 20090109
  Serious: Yes (Hospitalization)
  Sender: FDA-Public Use
  Company Number: TW-PFIZER INC-2008015098

PATIENT
  Sex: Female
  Weight: 48 kg

DRUGS (18)
  1. SU-011,248 [Suspect]
     Indication: GASTROINTESTINAL STROMAL TUMOUR
     Route: 048
  2. SU-011,248 [Suspect]
     Route: 048
  3. MYCOSTATIN [Concomitant]
     Route: 061
     Dates: start: 20080122, end: 20080204
  4. MEDROXYPROGESTERONE [Concomitant]
     Route: 048
     Dates: start: 20080103, end: 20080214
  5. ALPRAZOLAM [Concomitant]
     Route: 048
     Dates: start: 20080110, end: 20080214
  6. ACETAMINOPHEN [Concomitant]
     Route: 048
     Dates: start: 20080123, end: 20080202
  7. CHLORZOXAZONE [Concomitant]
     Route: 048
     Dates: start: 20080123, end: 20080214
  8. MAGNESIUM OXIDE [Concomitant]
     Route: 048
     Dates: start: 20080129, end: 20080214
  9. DEXTROMETHORPHAN [Concomitant]
     Route: 048
     Dates: start: 20080123, end: 20080206
  10. INDOMETHACIN [Concomitant]
     Route: 061
     Dates: start: 20080123, end: 20080206
  11. LORAZEPAM [Concomitant]
     Route: 048
     Dates: start: 20080110, end: 20080204
  12. AMLODIPINE [Concomitant]
     Route: 048
  13. ALL OTHER THERAPEUTIC PRODUCTS [Concomitant]
     Route: 061
  14. DEXAMETHASONE [Concomitant]
     Route: 061
     Dates: start: 20080110, end: 20080214
  15. NICAMETATE DIHYDROGEN CITRATE [Concomitant]
     Route: 048
     Dates: start: 20080205, end: 20080214
  16. POTASSIUM CHLORIDE [Concomitant]
     Route: 048
     Dates: start: 20080129, end: 20080130
  17. SODIUM CHLORIDE 0.9% [Concomitant]
     Route: 042
     Dates: start: 20080121, end: 20080129
  18. ESTAZOLAM [Concomitant]
     Route: 048
     Dates: start: 20080205, end: 20080214

REACTIONS (6)
  - BONE MARROW FAILURE [None]
  - HAEMATOCHEZIA [None]
  - HYPOTHYROIDISM [None]
  - LARYNGEAL OEDEMA [None]
  - PNEUMONIA [None]
  - REFLUX OESOPHAGITIS [None]
